FAERS Safety Report 23882322 (Version 1)
Quarter: 2024Q2

REPORT INFORMATION
  Report Type: Spontaneous
  Country: CA (occurrence: CA)
  Receive Date: 20240522
  Receipt Date: 20240522
  Transmission Date: 20240716
  Serious: Yes (Other)
  Sender: FDA-Public Use
  Company Number: CA-TAKEDA-2024TUS049164

PATIENT
  Age: 45 Year
  Sex: Female
  Weight: 84 kg

DRUGS (3)
  1. CINRYZE [Suspect]
     Active Substance: HUMAN C1-ESTERASE INHIBITOR
     Indication: Hereditary angioedema
     Dosage: 1500.0 INTERNATIONAL UNIT
     Route: 042
  2. CINRYZE [Suspect]
     Active Substance: HUMAN C1-ESTERASE INHIBITOR
     Indication: Hereditary angioedema
     Dosage: 1500.0 INTERNATIONAL UNIT
     Route: 042
  3. CINRYZE [Suspect]
     Active Substance: HUMAN C1-ESTERASE INHIBITOR
     Indication: Hereditary angioedema
     Dosage: 1500.0 INTERNATIONAL UNIT
     Route: 042

REACTIONS (4)
  - Herpes zoster [Unknown]
  - Interstitial lung disease [Unknown]
  - Pain [Unknown]
  - Post herpetic neuralgia [Unknown]
